FAERS Safety Report 16750775 (Version 1)
Quarter: 2019Q3

REPORT INFORMATION
  Report Type: Spontaneous
  Country: US (occurrence: US)
  Receive Date: 20190710
  Receipt Date: 20190710
  Transmission Date: 20191005
  Serious: Yes (Hospitalization)
  Sender: FDA-Public Use
  Company Number: None

PATIENT
  Age: 59 Year
  Sex: Female

DRUGS (3)
  1. OMEPRAZOLE. [Concomitant]
     Active Substance: OMEPRAZOLE
  2. AMLODIPINE [Concomitant]
     Active Substance: AMLODIPINE BESYLATE
  3. IBRANCE [Suspect]
     Active Substance: PALBOCICLIB
     Dosage: ?          OTHER DOSE:1 TABLET;?
     Route: 048

REACTIONS (1)
  - Sciatica [None]

NARRATIVE: CASE EVENT DATE: 20181101
